FAERS Safety Report 8251379-4 (Version None)
Quarter: 2012Q2

REPORT INFORMATION
  Report Type: 
  Country: None (occurrence: None)
  Receive Date: 20120402
  Receipt Date: 20120328
  Transmission Date: 20120825
  Serious: No
  Sender: FDA-Public Use
  Company Number: US-TEVA-330804USA

PATIENT

DRUGS (1)
  1. PLAN B ONE-STEP [Suspect]
     Dosage: 1.5 MILLIGRAM;
     Route: 063

REACTIONS (4)
  - URTICARIA [None]
  - HYPERSENSITIVITY [None]
  - VOMITING [None]
  - EXPOSURE DURING BREAST FEEDING [None]
